FAERS Safety Report 22142246 (Version 1)
Quarter: 2023Q1

REPORT INFORMATION
  Report Type: Report from Study
  Country: FR (occurrence: FR)
  Receive Date: 20230327
  Receipt Date: 20230327
  Transmission Date: 20230417
  Serious: Yes (Hospitalization, Other)
  Sender: FDA-Public Use
  Company Number: FR-PFIZER INC-PV202300051040

PATIENT
  Age: 18 Year
  Sex: Female
  Weight: 53 kg

DRUGS (9)
  1. GEMTUZUMAB OZOGAMICIN [Suspect]
     Active Substance: GEMTUZUMAB OZOGAMICIN
     Indication: Acute myeloid leukaemia
     Dosage: 4.95 MG, SINGLE
     Route: 042
     Dates: start: 20220621, end: 20220621
  2. GEMTUZUMAB OZOGAMICIN [Suspect]
     Active Substance: GEMTUZUMAB OZOGAMICIN
     Dosage: 4.95 MG, SINGLE
     Route: 042
     Dates: start: 20220624, end: 20220624
  3. GEMTUZUMAB OZOGAMICIN [Suspect]
     Active Substance: GEMTUZUMAB OZOGAMICIN
     Dosage: 4.95 MG, SINGLE
     Route: 042
     Dates: start: 20220627, end: 20220627
  4. CYTARABINE [Suspect]
     Active Substance: CYTARABINE
     Indication: Acute myeloid leukaemia
     Dosage: 200 MG/M2, DAILY
     Route: 042
     Dates: start: 20220617, end: 20220626
  5. CYTARABINE [Suspect]
     Active Substance: CYTARABINE
     Dosage: 200 MG/M2, DAILY
     Route: 042
     Dates: start: 20220805, end: 20220812
  6. CYTARABINE [Suspect]
     Active Substance: CYTARABINE
     Dosage: 6000 MG/M2
     Route: 042
     Dates: start: 20221007, end: 20221011
  7. CYTARABINE [Suspect]
     Active Substance: CYTARABINE
     Dosage: 6000 MG/M2
     Route: 042
     Dates: start: 20221122, end: 20221126
  8. MITOXANTRONE [Suspect]
     Active Substance: MITOXANTRONE HYDROCHLORIDE
     Indication: Acute myeloid leukaemia
     Dosage: 12.5 MG/M2, CYCLIC
     Route: 042
     Dates: start: 20220617, end: 20220620
  9. MITOXANTRONE [Suspect]
     Active Substance: MITOXANTRONE HYDROCHLORIDE
     Dosage: 12.5 MG/M2, DAILY
     Route: 042
     Dates: start: 20220805, end: 20220807

REACTIONS (1)
  - Guillain-Barre syndrome [Not Recovered/Not Resolved]

NARRATIVE: CASE EVENT DATE: 20230207
